FAERS Safety Report 4796537-6 (Version None)
Quarter: 2005Q4

REPORT INFORMATION
  Report Type: 
  Country: None (occurrence: None)
  Receive Date: 20051011
  Receipt Date: 20050221
  Transmission Date: 20060501
  Serious: Yes (Other)
  Sender: FDA-Public Use
  Company Number: US-JNJFOC-2005021589

PATIENT
  Age: 89 Year
  Sex: Male

DRUGS (1)
  1. ULTRACET [Suspect]
     Indication: OSTEOPOROSIS
     Dates: start: 20050202

REACTIONS (2)
  - BLOOD PRESSURE INCREASED [None]
  - DIZZINESS [None]
